FAERS Safety Report 4639270-3 (Version None)
Quarter: 2005Q2

REPORT INFORMATION
  Report Type: 
  Country: None (occurrence: None)
  Receive Date: 20050418
  Receipt Date: 20050404
  Transmission Date: 20051028
  Serious: Yes (Life-Threatening, Hospitalization, Disabling)
  Sender: FDA-Public Use
  Company Number: 05P-167-0296288-00

PATIENT
  Age: 71 Year
  Sex: Female

DRUGS (8)
  1. MERIDIA [Suspect]
     Indication: OBESITY
     Dosage: 15 MG, 1 IN 1 D, ORAL
     Route: 048
     Dates: start: 20050101, end: 20050318
  2. DILTIAZEM [Concomitant]
  3. LISINOPRIL [Concomitant]
  4. EPROSARTAN [Concomitant]
  5. ASPIRIN [Concomitant]
  6. DOXAZOSIN [Concomitant]
  7. ATENOLOL [Concomitant]
  8. GLICLAZIDE [Concomitant]

REACTIONS (6)
  - CARDIOGENIC SHOCK [None]
  - HYPOTENSION [None]
  - RENAL FAILURE ACUTE [None]
  - RENAL FAILURE CHRONIC [None]
  - SPINAL CORD INFARCTION [None]
  - SPINAL SHOCK [None]
